FAERS Safety Report 7996256 (Version 3)
Quarter: 2012Q4

REPORT INFORMATION
  Report Type: 
  Country: AR (occurrence: AR)
  Receive Date: 20110617
  Receipt Date: 20120921
  Transmission Date: 20130627
  Serious: Yes (Other)
  Sender: FDA-Public Use
  Company Number: AR-BRISTOL-MYERS SQUIBB COMPANY-15824527

PATIENT
  Sex: Female

DRUGS (1)
  1. SPRYCEL [Suspect]

REACTIONS (1)
  - Cytogenetic abnormality [Unknown]
